FAERS Safety Report 20073588 (Version 1)
Quarter: 2021Q4

REPORT INFORMATION
  Report Type: Report from Study
  Country: US (occurrence: US)
  Receive Date: 20211116
  Receipt Date: 20211116
  Transmission Date: 20220303
  Serious: Yes (Hospitalization)
  Sender: FDA-Public Use
  Company Number: US-CHILTERN-QED-2020-000036

PATIENT
  Age: 44 Year
  Sex: Female
  Weight: 82.3 kg

DRUGS (9)
  1. INFIGRATINIB [Suspect]
     Active Substance: INFIGRATINIB
     Indication: Adenocarcinoma
     Dosage: 125 MILLIGRAM, QD
     Route: 048
     Dates: start: 20200213, end: 20200303
  2. INFIGRATINIB [Suspect]
     Active Substance: INFIGRATINIB
     Indication: Cholangiocarcinoma
     Dosage: 125 MILLIGRAM, QD
     Route: 048
     Dates: start: 20200311, end: 20200322
  3. INFIGRATINIB [Suspect]
     Active Substance: INFIGRATINIB
     Indication: Adenocarcinoma
     Dosage: 100 MILLIGRAM, QD
     Route: 048
     Dates: start: 20200408, end: 20200721
  4. IBUPROFEN [Concomitant]
     Active Substance: IBUPROFEN
     Indication: Abdominal pain
     Dosage: 200 MILLIGRAM, QD
     Route: 048
     Dates: start: 201911, end: 20200408
  5. EMLA                               /00675501/ [Concomitant]
     Indication: Application site anaesthesia
     Dosage: 1 APPLICATION AS NECESSARY
     Route: 061
     Dates: start: 20200213
  6. SEVELAMER [Concomitant]
     Active Substance: SEVELAMER
     Indication: Hyperphosphataemia
     Dosage: 800 MILLIGRAM, TID
     Route: 048
     Dates: start: 20200220, end: 20200226
  7. SEVELAMER [Concomitant]
     Active Substance: SEVELAMER
     Dosage: 1600 MILLIGRAM, TID
     Route: 048
     Dates: start: 20200226, end: 20200307
  8. SEVELAMER [Concomitant]
     Active Substance: SEVELAMER
     Dosage: 800 MILLIGRAM, TID
     Route: 048
     Dates: start: 20200316, end: 20200329
  9. SEVELAMER [Concomitant]
     Active Substance: SEVELAMER
     Dosage: 800 MILLIGRAM, TID
     Route: 048
     Dates: start: 20200408

REACTIONS (1)
  - Erythema nodosum [Recovering/Resolving]

NARRATIVE: CASE EVENT DATE: 20200304
